FAERS Safety Report 5765582-6 (Version None)
Quarter: 2008Q2

REPORT INFORMATION
  Report Type: 
  Country: None (occurrence: None)
  Receive Date: 20080606
  Receipt Date: 20080606
  Transmission Date: 20081010
  Serious: Yes (Hospitalization)
  Sender: FDA-Public Use
  Company Number: None

PATIENT
  Sex: Female
  Weight: 49.09 kg

DRUGS (2)
  1. CISPLATIN [Suspect]
     Dosage: 86 MG
  2. ERBITUX [Suspect]
     Dosage: 1080 MG

REACTIONS (4)
  - CONSTIPATION [None]
  - NAUSEA [None]
  - PAIN IN EXTREMITY [None]
  - VOMITING [None]
